FAERS Safety Report 8495787-5 (Version None)
Quarter: 2012Q3

REPORT INFORMATION
  Report Type: 
  Country: None (occurrence: None)
  Receive Date: 20120709
  Receipt Date: 20120705
  Transmission Date: 20120928
  Serious: Yes (Other)
  Sender: FDA-Public Use
  Company Number: GB-ROCHE-1084836

PATIENT

DRUGS (1)
  1. TAMIFLU [Suspect]
     Indication: PRODUCT USED FOR UNKNOWN INDICATION

REACTIONS (25)
  - CONVULSION [None]
  - EYE INFLAMMATION [None]
  - TREMOR [None]
  - SINUS HEADACHE [None]
  - ABDOMINAL PAIN UPPER [None]
  - ANXIETY [None]
  - HEADACHE [None]
  - IRRITABLE BOWEL SYNDROME [None]
  - LIGAMENT PAIN [None]
  - STRESS [None]
  - FIBROMYALGIA [None]
  - MORBID THOUGHTS [None]
  - BURNING SENSATION [None]
  - ERYTHEMA [None]
  - FEAR [None]
  - PYREXIA [None]
  - NEUROLOGICAL SYMPTOM [None]
  - NIGHTMARE [None]
  - PALPITATIONS [None]
  - EMOTIONAL DISTRESS [None]
  - MYALGIA [None]
  - TONGUE DISCOLOURATION [None]
  - FATIGUE [None]
  - MALAISE [None]
  - DYSMENORRHOEA [None]
